FAERS Safety Report 4491504-4 (Version None)
Quarter: 2004Q4

REPORT INFORMATION
  Report Type: 
  Country: None (occurrence: None)
  Receive Date: 20041101
  Receipt Date: 20041015
  Transmission Date: 20050328
  Serious: Yes (Other)
  Sender: FDA-Public Use
  Company Number: B0348729A

PATIENT
  Age: 35 Year
  Sex: Male

DRUGS (3)
  1. PAXIL [Suspect]
     Dosage: 20 MG/ORAL
  2. CISORDINOL TABLET (CISORDINOL) [Suspect]
     Dosage: 25 MG/ORAL
     Route: 048
  3. AKINETON [Concomitant]

REACTIONS (2)
  - HYPONATRAEMIA [None]
  - NEUROLEPTIC MALIGNANT SYNDROME [None]
